FAERS Safety Report 24292967 (Version 1)
Quarter: 2024Q3

REPORT INFORMATION
  Report Type: Spontaneous
  Country: US (occurrence: None)
  Receive Date: 20240906
  Receipt Date: 20240906
  Transmission Date: 20241017
  Serious: No
  Sender: DOMPE FARMACEUTICI
  Company Number: US-FARMAPROD-202308-202311-3310

PATIENT
  Age: 62 Year
  Sex: Male

DRUGS (14)
  1. OXERVATE [Suspect]
     Active Substance: CENEGERMIN-BKBJ
     Indication: Neurotrophic keratopathy
     Route: 047
     Dates: start: 20231026
  2. XIIDRA [Concomitant]
     Active Substance: LIFITEGRAST
  3. JARDIANCE [Concomitant]
     Active Substance: EMPAGLIFLOZIN
  4. NOVOLOG [Concomitant]
     Active Substance: INSULIN ASPART
  5. BASAGLAR [Concomitant]
     Active Substance: INSULIN GLARGINE
     Dosage: KWIKPEN U-100
  6. LINZESS [Concomitant]
     Active Substance: LINACLOTIDE
  7. SPIRONOLACTONE [Concomitant]
     Active Substance: SPIRONOLACTONE
  8. FUROSEMIDE [Concomitant]
     Active Substance: FUROSEMIDE
  9. ROSUVASTATIN CALCIUM [Concomitant]
     Active Substance: ROSUVASTATIN CALCIUM
  10. EZETIMIBE [Concomitant]
     Active Substance: EZETIMIBE
  11. AMLODIPINE BESYLATE [Concomitant]
     Active Substance: AMLODIPINE BESYLATE
  12. CARVEDILOL [Concomitant]
     Active Substance: CARVEDILOL
  13. LOSARTAN POTASSIUM [Concomitant]
     Active Substance: LOSARTAN POTASSIUM
  14. SERUM EYE DROPS [Concomitant]

REACTIONS (3)
  - Eye irritation [Unknown]
  - Eye swelling [Unknown]
  - Eye pain [Unknown]

NARRATIVE: CASE EVENT DATE: 20231027
